FAERS Safety Report 23154910 (Version 1)
Quarter: 2023Q4

REPORT INFORMATION
  Report Type: Spontaneous
  Country: None (occurrence: DE)
  Receive Date: 20231107
  Receipt Date: 20231107
  Transmission Date: 20240110
  Serious: Yes (Other)
  Sender: FDA-Public Use
  Company Number: DE-B.Braun Medical Inc.-2147946

PATIENT
  Age: 68 Year
  Sex: Male

DRUGS (15)
  1. LIDOCAINE HYDROCHLORIDE [Suspect]
     Active Substance: DEXTROSE MONOHYDRATE\EPINEPHRINE\EPINEPHRINE BITARTRATE\LIDOCAINE\LIDOCAINE HYDROCHLORIDE\LIDOCAINE
     Indication: Trigeminal neuralgia
  2. AMBROXOL [Suspect]
     Active Substance: AMBROXOL
  3. AMITRIPTYLINE HYDROCHLORIDE [Suspect]
     Active Substance: AMITRIPTYLINE HYDROCHLORIDE
  4. OXCARBAZEPINE [Suspect]
     Active Substance: OXCARBAZEPINE
  5. PREGABALIN [Suspect]
     Active Substance: PREGABALIN
  6. GABAPENTIN [Suspect]
     Active Substance: GABAPENTIN
  7. ACYCLOVIR [Suspect]
     Active Substance: ACYCLOVIR
  8. TAPENTADOL HYDROCHLORIDE [Suspect]
     Active Substance: TAPENTADOL HYDROCHLORIDE
  9. DEXAMETHASONE [Suspect]
     Active Substance: DEXAMETHASONE
  10. HYDROMORPHONE [Suspect]
     Active Substance: HYDROMORPHONE
  11. CAPSAICIN [Suspect]
     Active Substance: CAPSAICIN
  12. OXCARBAZEPINE [Concomitant]
     Active Substance: OXCARBAZEPINE
  13. AMITRIPTYLINE [Concomitant]
     Active Substance: AMITRIPTYLINE
  14. DEXKETOPROFEN [Concomitant]
     Active Substance: DEXKETOPROFEN
  15. AMBROXOL [Concomitant]
     Active Substance: AMBROXOL

REACTIONS (23)
  - Glaucoma [None]
  - Atrial fibrillation [None]
  - Benign prostatic hyperplasia [None]
  - Liver function test increased [None]
  - Sleep apnoea syndrome [None]
  - Quality of life decreased [None]
  - Fatigue [None]
  - Constipation [None]
  - Osteoarthritis [None]
  - Nasopharyngitis [None]
  - Hypoaesthesia [None]
  - Drug eruption [None]
  - Depression [None]
  - Application site erythema [None]
  - Fall [None]
  - Blood creatinine increased [None]
  - Application site pain [None]
  - Confusional state [None]
  - Hyperaesthesia [None]
  - Sleep deficit [None]
  - Insomnia [None]
  - Intentional product use issue [None]
  - Off label use [None]
